FAERS Safety Report 8983344 (Version 1)
Quarter: 2012Q4

REPORT INFORMATION
  Report Type: Report from Study
  Country: GB (occurrence: GB)
  Receive Date: 20121221
  Receipt Date: 20121221
  Transmission Date: 20130627
  Serious: Yes (Other)
  Sender: FDA-Public Use
  Company Number: GB-B.I. PHARMACEUTICALS,INC./RIDGEFIELD-2012-UK-01100UK

PATIENT
  Age: 70 Year
  Sex: Male

DRUGS (10)
  1. PRADAXA [Suspect]
     Indication: ATRIAL FIBRILLATION
     Dosage: 300 mg
     Route: 048
     Dates: start: 20120728, end: 20120831
  2. ASPIRIN [Concomitant]
     Indication: CEREBROVASCULAR ACCIDENT PROPHYLAXIS
     Dosage: 75 mg
     Route: 048
  3. CARDURA [Concomitant]
     Indication: HYPERTENSION
     Dosage: 4 mg
     Route: 048
  4. LISINOPRIL [Concomitant]
     Indication: HYPERTENSION
     Dosage: 30 mg
     Route: 048
  5. TAMSULOSIN [Concomitant]
     Indication: BENIGN PROSTATIC HYPERPLASIA
     Dosage: 400 mcg
     Route: 048
  6. FUROSEMIDE [Concomitant]
     Indication: HYPERTENSION
     Dosage: 40 mg
     Route: 048
  7. FUROSEMIDE [Concomitant]
     Indication: FLUID RETENTION
  8. METOPROLOL [Concomitant]
     Indication: HYPERTENSION
     Dosage: 500 mg
     Route: 048
  9. METOPROLOL [Concomitant]
     Indication: ARRHYTHMIA
  10. BIMATOPROST TIMOLOL [Concomitant]
     Indication: GLAUCOMA
     Dosage: eye drops, solution
     Route: 031

REACTIONS (2)
  - Gastrointestinal carcinoma [Unknown]
  - Rectal haemorrhage [Unknown]
